FAERS Safety Report 24358598 (Version 1)
Quarter: 2024Q3

REPORT INFORMATION
  Report Type: Spontaneous
  Country: CN (occurrence: CN)
  Receive Date: 20240924
  Receipt Date: 20240924
  Transmission Date: 20241017
  Serious: Yes (Other)
  Sender: ASTELLAS
  Company Number: CN-ASTELLAS-2024-AER-008243

PATIENT
  Age: 69 Year
  Sex: Male
  Weight: 61.0 kg

DRUGS (3)
  1. ISAVUCONAZOLE [Interacting]
     Active Substance: ISAVUCONAZOLE
     Indication: Bronchopulmonary aspergillosis
     Dosage: 3X/DAY
     Route: 050
     Dates: start: 20240620, end: 20240625
  2. ISAVUCONAZOLE [Interacting]
     Active Substance: ISAVUCONAZOLE
     Route: 050
     Dates: start: 2024
  3. RITONAVIR\SIMNOTRELVIR [Suspect]
     Active Substance: RITONAVIR\SIMNOTRELVIR
     Indication: Coronavirus infection
     Route: 048
     Dates: start: 20240623, end: 20240725

REACTIONS (4)
  - Drug-induced liver injury [Recovering/Resolving]
  - Contraindicated product administered [Unknown]
  - Labelled drug-drug interaction medication error [Unknown]
  - Off label use [Recovered/Resolved]

NARRATIVE: CASE EVENT DATE: 20240620
